FAERS Safety Report 9845774 (Version 1)
Quarter: 2014Q1

REPORT INFORMATION
  Report Type: Spontaneous
  Country: US (occurrence: US)
  Receive Date: 20140127
  Receipt Date: 20140127
  Transmission Date: 20141002
  Serious: No
  Sender: FDA-Public Use
  Company Number: US-PFIZER INC-2014024474

PATIENT
  Age: 27 Year
  Sex: Male

DRUGS (12)
  1. ZOLOFT [Suspect]
     Indication: ANXIETY
     Dosage: 50 MG (TWO TABLETS, 25MG EACH), DAILY
     Dates: start: 20140116
  2. ZOLOFT [Suspect]
     Indication: DEPRESSION
  3. ZOLOFT [Suspect]
     Indication: PANIC DISORDER
  4. CELEXA [Suspect]
     Indication: ANXIETY
     Dosage: 20 MG, DAILY
     Dates: start: 200706
  5. CELEXA [Suspect]
     Indication: DEPRESSION
     Dosage: 40 MG, DAILY
  6. CELEXA [Suspect]
     Indication: PANIC DISORDER
     Dosage: 60 MG, DAILY
  7. CYMBALTA [Suspect]
     Indication: ANXIETY
     Dosage: 30 MG, DAILY
     Dates: start: 201305, end: 2013
  8. CYMBALTA [Suspect]
     Indication: DEPRESSION
     Dosage: 60 MG, DAILY
     Dates: start: 2013
  9. CYMBALTA [Suspect]
     Indication: PANIC DISORDER
  10. DIOVAN [Concomitant]
     Indication: HYPERTENSION
     Dosage: UNK
     Dates: start: 2013
  11. TOPROL [Concomitant]
     Indication: HYPERTENSION
     Dosage: 400 MG (TWO TABLETS OF 200MG EACH), DAILY
  12. TOPROL [Concomitant]
     Indication: HEART RATE ABNORMAL

REACTIONS (2)
  - Drug ineffective [Unknown]
  - Blood cholesterol increased [Unknown]
